FAERS Safety Report 9019523 (Version 1)
Quarter: 2013Q1

REPORT INFORMATION
  Report Type: Spontaneous
  Country: US (occurrence: US)
  Receive Date: 20130118
  Receipt Date: 20130118
  Transmission Date: 20140127
  Serious: No
  Sender: FDA-Public Use
  Company Number: US-SANOFI-AVENTIS-2012SA061328

PATIENT
  Sex: Female

DRUGS (3)
  1. LASIX [Suspect]
     Route: 065
  2. TIKOSYN [Suspect]
     Indication: EXTRASYSTOLES
     Route: 065
  3. ATIVAN [Suspect]
     Route: 065

REACTIONS (2)
  - Tremor [Unknown]
  - Anxiety [Unknown]
